FAERS Safety Report 8433592-6 (Version None)
Quarter: 2012Q2

REPORT INFORMATION
  Report Type: 
  Country: None (occurrence: None)
  Receive Date: 20120613
  Receipt Date: 20120612
  Transmission Date: 20120825
  Serious: Yes (Other)
  Sender: FDA-Public Use
  Company Number: US-BAYER-2012-058179

PATIENT
  Age: 40 Year
  Sex: Female

DRUGS (1)
  1. MAGNEVIST [Suspect]
     Indication: NUCLEAR MAGNETIC RESONANCE IMAGING
     Dosage: 5 ML, ONCE
     Dates: start: 20120607, end: 20120607

REACTIONS (4)
  - HYPERSENSITIVITY [None]
  - INFUSION SITE PAIN [None]
  - TREMOR [None]
  - HYPOAESTHESIA [None]
